FAERS Safety Report 4342119-X (Version None)
Quarter: 2004Q1

REPORT INFORMATION
  Report Type: 
  Country: None (occurrence: None)
  Receive Date: 20040329
  Receipt Date: 20040119
  Transmission Date: 20041129
  Serious: No
  Sender: FDA-Public Use
  Company Number: 04P-163-0247530-00

PATIENT
  Age: 67 Year
  Sex: Male
  Weight: 91.6266 kg

DRUGS (8)
  1. HUMIRA [Suspect]
     Indication: RHEUMATOID ARTHRITIS
     Dosage: 40 MG, 1 IN 2 WK, SUBCUTANEOUS
     Route: 058
     Dates: start: 20031228
  2. PREDNISONE [Concomitant]
  3. FLUOXETINE HCL [Concomitant]
  4. ATORVASTATIN [Concomitant]
  5. DIGOXIN [Concomitant]
  6. ALPRAZOLAM [Concomitant]
  7. WARFARIN SODIUM [Concomitant]
  8. DIURETICS [Concomitant]

REACTIONS (2)
  - CONDITION AGGRAVATED [None]
  - VITREOUS FLOATERS [None]
